FAERS Safety Report 24691814 (Version 2)
Quarter: 2024Q4

REPORT INFORMATION
  Report Type: Spontaneous
  Country: US (occurrence: US)
  Receive Date: 20241203
  Receipt Date: 20241205
  Transmission Date: 20250115
  Serious: No
  Sender: Haleon PLC
  Company Number: US-HALEON-2212570

PATIENT

DRUGS (1)
  1. NICORETTE [Suspect]
     Active Substance: NICOTINE
     Indication: Product used for unknown indication

REACTIONS (4)
  - Pain in jaw [Unknown]
  - Product complaint [Unknown]
  - Product use complaint [Unknown]
  - Drug ineffective [Unknown]
